FAERS Safety Report 7281470-0 (Version None)
Quarter: 2011Q1

REPORT INFORMATION
  Report Type: 
  Country: None (occurrence: None)
  Receive Date: 20110128
  Receipt Date: 20110113
  Transmission Date: 20110831
  Serious: Yes (Other)
  Sender: FDA-Public Use
  Company Number: AUR-APL-2010-01571

PATIENT
  Age: 60 Year
  Sex: Female
  Weight: 77 kg

DRUGS (8)
  1. GEMFIBROZIL [Suspect]
     Indication: HYPERTENSION
     Dosage: 800MG, QID,
     Dates: end: 20100101
  2. LOVASTATIN [Suspect]
     Indication: HYPERCHOLESTEROLAEMIA
     Dosage: 800MG, QID,
  3. UNK CHOLESTEROL [Suspect]
     Indication: BLOOD CHOLESTEROL INCREASED
  4. PRISTIQ [Suspect]
     Indication: DEPRESSION
     Dosage: LOW DOSE - 100MG (SCHEDULE DOSAGE INCREASE), DAILY
     Dates: start: 20100101, end: 20100401
  5. NORVASC [Suspect]
     Indication: HYPERTENSION
     Dates: end: 20100101
  6. HYDROCHLOROTHIAZIDE [Suspect]
     Indication: HYPERTENSION
     Dates: start: 20100101
  7. GABAPENTIN [Suspect]
     Indication: NEURALGIA
     Dosage: 800MG, QID,
     Dates: start: 20100405
  8. TOPAMAX [Suspect]
     Indication: NERVE INJURY
     Dates: start: 20100405

REACTIONS (12)
  - DEPRESSION [None]
  - WEIGHT DECREASED [None]
  - FACIAL BONES FRACTURE [None]
  - NAUSEA [None]
  - WEIGHT INCREASED [None]
  - DEHYDRATION [None]
  - DECREASED APPETITE [None]
  - LOSS OF CONSCIOUSNESS [None]
  - CONCUSSION [None]
  - MEMORY IMPAIRMENT [None]
  - HYPOTENSION [None]
  - HYPERTENSION [None]
